FAERS Safety Report 9461680 (Version 1)
Quarter: 2013Q3

REPORT INFORMATION
  Report Type: Spontaneous
  Country: JP (occurrence: JP)
  Receive Date: 20130816
  Receipt Date: 20130816
  Transmission Date: 20140515
  Serious: Yes (Hospitalization, Other)
  Sender: FDA-Public Use
  Company Number: JP-MERCK-1308JPN004614

PATIENT
  Age: 78 Year
  Sex: Female

DRUGS (1)
  1. BONALON [Suspect]
     Indication: OSTEOPOROSIS POSTMENOPAUSAL
     Dosage: UNK
     Route: 048

REACTIONS (1)
  - Femur fracture [Recovered/Resolved]
